FAERS Safety Report 16287983 (Version 1)
Quarter: 2019Q2

REPORT INFORMATION
  Report Type: Spontaneous
  Country: US (occurrence: US)
  Receive Date: 20190508
  Receipt Date: 20190508
  Transmission Date: 20190711
  Serious: No
  Sender: FDA-Public Use
  Company Number: US-009507513-1905USA002562

PATIENT
  Age: 40 Year
  Sex: Female

DRUGS (6)
  1. FOLLISTIM AQ [Suspect]
     Active Substance: FOLLITROPIN
     Indication: INFERTILITY
     Dosage: 150 UNITS  QD
     Route: 058
  2. MENOPUR [Concomitant]
     Active Substance: FOLLITROPIN\LUTEINIZING HORMONE
  3. NOVAREL [Concomitant]
     Active Substance: CHORIOGONADOTROPIN ALFA
  4. DOXYCYCLINE. [Concomitant]
     Active Substance: DOXYCYCLINE
  5. GANIRELIX ACETATE INJECTION [Suspect]
     Active Substance: GANIRELIX ACETATE
     Indication: INFERTILITY
     Dosage: 250 MICROGRAM, QD
     Route: 058
  6. LEUPROLIDE [Concomitant]
     Active Substance: LEUPROLIDE

REACTIONS (1)
  - Rash [Recovered/Resolved]

NARRATIVE: CASE EVENT DATE: 20190503
